FAERS Safety Report 6137830-4 (Version None)
Quarter: 2009Q1

REPORT INFORMATION
  Report Type: 
  Country: None (occurrence: None)
  Receive Date: 20090331
  Receipt Date: 20090320
  Transmission Date: 20090719
  Serious: Yes (Disabling)
  Sender: FDA-Public Use
  Company Number: GB-AMGEN-US340131

PATIENT
  Age: 54 Year
  Sex: Female

DRUGS (2)
  1. ENBREL [Suspect]
     Indication: PSORIASIS
     Route: 058
     Dates: start: 20080801, end: 20081101
  2. METHOTREXATE [Concomitant]
     Indication: PSORIASIS
     Dosage: DOSAGE UNSPECIFIED, ONCE WEEKLY
     Route: 048
     Dates: start: 20080101, end: 20080901

REACTIONS (1)
  - ASTHMA [None]
